FAERS Safety Report 4300259-5 (Version None)
Quarter: 2004Q1

REPORT INFORMATION
  Report Type: 
  Country: None (occurrence: None)
  Receive Date: 20040218
  Receipt Date: 20040202
  Transmission Date: 20041129
  Serious: Yes (Death, Hospitalization, Other)
  Sender: FDA-Public Use
  Company Number: US_0402100479

PATIENT
  Age: 22 Year
  Sex: Male

DRUGS (3)
  1. SOMATROPIN [Suspect]
     Indication: GROWTH HORMONE DEFICIENCY
  2. TESTOSTERONE [Concomitant]
  3. THYROXINE [Concomitant]

REACTIONS (4)
  - BONE SARCOMA [None]
  - NEOPLASM RECURRENCE [None]
  - NEUTROPENIA [None]
  - SEPSIS [None]
